FAERS Safety Report 8806539 (Version 1)
Quarter: 2012Q4

REPORT INFORMATION
  Report Type: Spontaneous
  Country: US (occurrence: None)
  Receive Date: 20120918
  Receipt Date: 20120918
  Transmission Date: 20130627
  Serious: Yes (Other)
  Sender: FDA-Public Use
  Company Number: USA/USA/12/0025840

PATIENT
  Age: 78 Year
  Sex: Female

DRUGS (6)
  1. CIPROFLOXACIN [Suspect]
     Indication: URINARY TRACT INFECTION
     Route: 048
     Dates: start: 20120413, end: 20120416
  2. CIPROFLOXACIN [Suspect]
     Indication: URINARY TRACT INFECTION
     Route: 048
     Dates: start: 20120518, end: 20120523
  3. BYSTOLIC [Suspect]
     Route: 048
     Dates: start: 20110331
  4. AMLODIPINE [Concomitant]
  5. VITAMIN D3 (COLECALCIFEROL) [Concomitant]
  6. CALCIUM [Concomitant]

REACTIONS (4)
  - Pruritus [None]
  - Joint swelling [None]
  - Chills [None]
  - Decreased appetite [None]
